FAERS Safety Report 11281096 (Version 4)
Quarter: 2015Q4

REPORT INFORMATION
  Report Type: Report from Study
  Country: US (occurrence: US)
  Receive Date: 20150717
  Receipt Date: 20151214
  Transmission Date: 20160304
  Serious: Yes (Hospitalization, Other)
  Sender: FDA-Public Use
  Company Number: US-PFIZER INC-2015238111

PATIENT
  Age: 74 Year
  Sex: Male
  Weight: 79 kg

DRUGS (8)
  1. AMLODIPINE BESILATE [Suspect]
     Active Substance: AMLODIPINE BESYLATE
     Dosage: 20 MG, UNK
     Route: 065
     Dates: start: 201501
  2. BRILINTA [Suspect]
     Active Substance: TICAGRELOR
     Indication: STENT PLACEMENT
     Dosage: 90 MG, 2X/DAY
     Route: 048
     Dates: start: 20150121, end: 20150706
  3. FUROSEMIDE. [Suspect]
     Active Substance: FUROSEMIDE
     Dosage: 20 MG, 1X/DAY
     Route: 065
     Dates: start: 201501
  4. BRILINTA [Suspect]
     Active Substance: TICAGRELOR
     Indication: ACUTE CORONARY SYNDROME
     Dosage: UNK
     Dates: start: 201511
  5. METFORMIN [Suspect]
     Active Substance: METFORMIN HYDROCHLORIDE
     Indication: DIABETES MELLITUS
     Dosage: 1000 MG, 2X/DAY
     Dates: start: 2012
  6. BABY ASPIRIN [Suspect]
     Active Substance: ASPIRIN
     Indication: ANTICOAGULANT THERAPY
     Dosage: 81 MG, DAILY
     Dates: start: 2009
  7. ATENOLOL. [Suspect]
     Active Substance: ATENOLOL
     Indication: ATRIAL FIBRILLATION
     Dosage: 20 MG, DAILY
     Route: 048
     Dates: start: 2012
  8. DIGOXIN. [Suspect]
     Active Substance: DIGOXIN
     Indication: ATRIAL FIBRILLATION
     Dosage: 250 MG, DAILY

REACTIONS (5)
  - Hypersomnia [Recovering/Resolving]
  - Generalised oedema [Recovering/Resolving]
  - Local swelling [Recovering/Resolving]
  - Nephrolithiasis [Unknown]
  - Fatigue [Recovering/Resolving]
